FAERS Safety Report 9063679 (Version 1)
Quarter: 2013Q1

REPORT INFORMATION
  Report Type: Spontaneous
  Country: ZA (occurrence: ZA)
  Receive Date: 20130213
  Receipt Date: 20130213
  Transmission Date: 20140127
  Serious: Yes (Other)
  Sender: FDA-Public Use
  Company Number: ZA-PFIZER INC-2013052532

PATIENT
  Sex: Female

DRUGS (2)
  1. XALATAN [Suspect]
     Route: 031
  2. DIAMOX [Concomitant]

REACTIONS (1)
  - Eye disorder [Unknown]
